FAERS Safety Report 25703081 (Version 1)
Quarter: 2025Q3

REPORT INFORMATION
  Report Type: Report from Study
  Country: US (occurrence: US)
  Receive Date: 20250819
  Receipt Date: 20250819
  Transmission Date: 20251021
  Serious: Yes (Hospitalization, Other)
  Sender: ABBVIE
  Company Number: US-ABBVIE-6420247

PATIENT
  Sex: Male

DRUGS (1)
  1. RINVOQ [Suspect]
     Active Substance: UPADACITINIB
     Indication: Colitis ulcerative
     Route: 048
     Dates: start: 20250512

REACTIONS (3)
  - Seizure [Recovering/Resolving]
  - Brain neoplasm [Recovering/Resolving]
  - Cerebral haemorrhage [Unknown]

NARRATIVE: CASE EVENT DATE: 20250101
